FAERS Safety Report 8413244-9 (Version None)
Quarter: 2012Q2

REPORT INFORMATION
  Report Type: 
  Country: None (occurrence: None)
  Receive Date: 20120605
  Receipt Date: 20120524
  Transmission Date: 20120825
  Serious: Yes (Hospitalization)
  Sender: FDA-Public Use
  Company Number: FR-PFIZER INC-2012132540

PATIENT
  Age: 66 Year
  Sex: Male

DRUGS (8)
  1. NEBIVOLOL HCL [Concomitant]
     Dosage: 0.5 (UNITS NOT PROVIDED) TABLET 1X/DAY
  2. SOLU-MEDROL [Concomitant]
     Indication: PREMEDICATION
  3. PULMICORT [Concomitant]
     Dosage: 2X/DAY
  4. ZOFRAN [Concomitant]
     Indication: PREMEDICATION
     Dosage: UNK
     Dates: start: 20120222, end: 20120222
  5. ZANTAC [Suspect]
     Indication: PREMEDICATION
     Dosage: 50 MG, CYCLIC
     Route: 042
     Dates: start: 20120222, end: 20120222
  6. POLARAMINE [Suspect]
     Indication: PREMEDICATION
     Dosage: 5 MG, CYCLIC
     Route: 042
     Dates: start: 20120222, end: 20120222
  7. VENTOLIN [Concomitant]
     Dosage: 3X/DAY
  8. PACLITAXEL [Suspect]
     Indication: LUNG SQUAMOUS CELL CARCINOMA METASTATIC
     Dosage: 80 MG, CYCLIC
     Route: 042
     Dates: start: 20120222, end: 20120222

REACTIONS (2)
  - LARYNGEAL OEDEMA [None]
  - HYPERSENSITIVITY [None]
